FAERS Safety Report 17052968 (Version 3)
Quarter: 2019Q4

REPORT INFORMATION
  Report Type: Spontaneous
  Country: JP (occurrence: JP)
  Receive Date: 20191120
  Receipt Date: 20191217
  Transmission Date: 20200122
  Serious: Yes (Death, Hospitalization, Other)
  Sender: FDA-Public Use
  Company Number: JP-JNJFOC-20191120087

PATIENT
  Age: 92 Year
  Sex: Female

DRUGS (2)
  1. RIVAROXABAN [Suspect]
     Active Substance: RIVAROXABAN
     Indication: ATRIAL FIBRILLATION
     Dosage: DAILY DOSE 10 MG
     Route: 048
  2. CLARITHROMYCIN. [Suspect]
     Active Substance: CLARITHROMYCIN
     Indication: BRONCHITIS CHRONIC
     Dosage: DAILY DOSE 100 MG

REACTIONS (6)
  - Pulmonary alveolar haemorrhage [Fatal]
  - Labelled drug-drug interaction medication error [Fatal]
  - Dyspnoea [Unknown]
  - Renal impairment [Unknown]
  - Wheezing [Unknown]
  - Petechiae [Unknown]
